FAERS Safety Report 23938517 (Version 3)
Quarter: 2024Q2

REPORT INFORMATION
  Report Type: Spontaneous
  Country: ES (occurrence: ES)
  Receive Date: 20240604
  Receipt Date: 20240620
  Transmission Date: 20240716
  Serious: Yes (Hospitalization, Other)
  Sender: FDA-Public Use
  Company Number: None

PATIENT
  Age: 23 Year
  Sex: Male

DRUGS (2)
  1. TOFACITINIB CITRATE [Suspect]
     Active Substance: TOFACITINIB CITRATE
     Indication: Colitis ulcerative
     Dosage: 10 MG, 2X/DAY (EACH 12H)
     Route: 048
     Dates: start: 20230331, end: 20230526
  2. TOFACITINIB CITRATE [Suspect]
     Active Substance: TOFACITINIB CITRATE
     Dosage: 5 MG, 2X/DAY (EACH 12H)
     Route: 048
     Dates: start: 20230526

REACTIONS (1)
  - Exertional rhabdomyolysis [Recovered/Resolved]

NARRATIVE: CASE EVENT DATE: 20231104
